FAERS Safety Report 8402541-9 (Version None)
Quarter: 2012Q2

REPORT INFORMATION
  Report Type: 
  Country: None (occurrence: None)
  Receive Date: 20120601
  Receipt Date: 20120523
  Transmission Date: 20120825
  Serious: Yes (Hospitalization)
  Sender: FDA-Public Use
  Company Number: JP-VERTEX PHARMACEUTICALS INC.-AE-2012-007462

PATIENT
  Age: 66 Year
  Sex: Male

DRUGS (9)
  1. REBETOL [Concomitant]
     Route: 048
     Dates: start: 20120419, end: 20120425
  2. LANSOPRAZOLE [Concomitant]
     Route: 048
  3. TELAVIC (TELAPREVIR) [Suspect]
     Indication: HEPATITIS C
     Route: 048
     Dates: start: 20120322
  4. REBETOL [Concomitant]
     Route: 048
     Dates: start: 20120426, end: 20120510
  5. URSO 250 [Concomitant]
     Route: 048
  6. REBETOL [Concomitant]
     Indication: HEPATITIS C
     Route: 048
     Dates: start: 20120322, end: 20120418
  7. PEG-INTRON [Concomitant]
     Route: 058
     Dates: start: 20120322
  8. ALLOPURINOL [Concomitant]
     Route: 048
  9. NORVASC [Concomitant]
     Route: 048

REACTIONS (1)
  - GASTRITIS [None]
